FAERS Safety Report 24254196 (Version 1)
Quarter: 2024Q3

REPORT INFORMATION
  Report Type: Spontaneous
  Country: EG (occurrence: EG)
  Receive Date: 20240827
  Receipt Date: 20240827
  Transmission Date: 20241016
  Serious: Yes (Death)
  Sender: PFIZER
  Company Number: EG-PFIZER INC-PV202400111091

PATIENT
  Age: 76 Year
  Sex: Female

DRUGS (1)
  1. IBRANCE [Suspect]
     Active Substance: PALBOCICLIB
     Dosage: 125 MG, ONE TAB. DAILY FOR 21 DAYS AND ONE WEEK REST
     Route: 048
     Dates: start: 20231106

REACTIONS (1)
  - Death [Fatal]
